FAERS Safety Report 9779460 (Version 1)
Quarter: 2013Q4

REPORT INFORMATION
  Report Type: Spontaneous
  Country: CN (occurrence: CN)
  Receive Date: 20131223
  Receipt Date: 20131223
  Transmission Date: 20140711
  Serious: Yes (Other)
  Sender: FDA-Public Use
  Company Number: CN-ACTAVIS-2013-22827

PATIENT
  Age: 73 Year
  Sex: Female

DRUGS (8)
  1. CLOPIDOGREL (UNKNOWN) [Suspect]
     Indication: CEREBROVASCULAR ACCIDENT PROPHYLAXIS
     Dosage: 75 MG, DAILY
     Route: 065
  2. ASPIRIN (UNKNOWN) [Suspect]
     Indication: CEREBRAL INFARCTION
     Dosage: 0.1 G, DAILY
     Route: 048
  3. AMLODIPINE [Concomitant]
     Indication: HYPERTENSION
     Dosage: 5 MG, DAILY
     Route: 048
  4. INSULIN GLARGINE [Concomitant]
     Indication: TYPE 2 DIABETES MELLITUS
     Dosage: 12 U QN (AT NIGHT)
     Route: 065
  5. INSULIN GLARGINE [Concomitant]
     Dosage: 8 U QN (AT NIGHT)
     Route: 065
  6. CITICOLINE [Concomitant]
     Indication: PRODUCT USED FOR UNKNOWN INDICATION
     Dosage: 0.5 G, DAILY
     Route: 041
  7. ATORVASTATIN [Concomitant]
     Indication: PRODUCT USED FOR UNKNOWN INDICATION
     Dosage: 20 MG, DAILY, AT NIGHT
     Route: 048
  8. NOVOLIN 30R                        /00030501/ [Concomitant]
     Indication: TYPE 2 DIABETES MELLITUS
     Dosage: 8 U/ 6U TWICE DAILY (INSULIN I.H.)
     Route: 065

REACTIONS (2)
  - Thrombocytopenia [Recovered/Resolved]
  - Gingival bleeding [Unknown]
